FAERS Safety Report 4351490-4 (Version None)
Quarter: 2004Q2

REPORT INFORMATION
  Report Type: 
  Country: None (occurrence: None)
  Receive Date: 20040430
  Receipt Date: 20040430
  Transmission Date: 20050107
  Serious: Yes (Hospitalization)
  Sender: FDA-Public Use
  Company Number: None

PATIENT
  Age: 54 Year
  Sex: Male
  Weight: 89 kg

DRUGS (2)
  1. BC POWDER [Suspect]
     Indication: BACK PAIN
  2. MOTRIN [Suspect]
     Indication: BACK PAIN

REACTIONS (7)
  - ANAEMIA [None]
  - FAECAL OCCULT BLOOD POSITIVE [None]
  - GASTRIC ULCER [None]
  - MALAISE [None]
  - MYALGIA [None]
  - PAIN [None]
  - PNEUMONIA [None]
